FAERS Safety Report 5034667-4 (Version None)
Quarter: 2006Q2

REPORT INFORMATION
  Report Type: 
  Country: None (occurrence: None)
  Receive Date: 20060621
  Receipt Date: 20060531
  Transmission Date: 20061013
  Serious: Yes (Other)
  Sender: FDA-Public Use
  Company Number: CH200605005342

PATIENT
  Age: 29 Year
  Sex: Male
  Weight: 86.3 kg

DRUGS (2)
  1. ZYPREXA [Suspect]
     Indication: SCHIZOPHRENIA, CATATONIC TYPE
     Dosage: 5 MG, DAILY (1/D), ORAL
     Route: 048
     Dates: start: 20051222, end: 20060111
  2. ESCITALOPRAM OXALATE [Concomitant]

REACTIONS (5)
  - COLD SWEAT [None]
  - DIZZINESS [None]
  - DRUG INTERACTION [None]
  - FALL [None]
  - PALLOR [None]
